FAERS Safety Report 24860601 (Version 1)
Quarter: 2025Q1

REPORT INFORMATION
  Report Type: Spontaneous
  Country: GB (occurrence: GB)
  Receive Date: 20250120
  Receipt Date: 20250120
  Transmission Date: 20250409
  Serious: Yes (Life-Threatening, Hospitalization, Disabling, Other)
  Sender: ALKEM
  Company Number: None

PATIENT
  Age: 26 Year
  Sex: Male
  Weight: 83 kg

DRUGS (1)
  1. FINASTERIDE [Suspect]
     Active Substance: FINASTERIDE
     Indication: Heart rate
     Route: 065
     Dates: start: 20241028, end: 20241104

REACTIONS (10)
  - Brain fog [Not Recovered/Not Resolved]
  - Chest pain [Not Recovered/Not Resolved]
  - Change of bowel habit [Not Recovered/Not Resolved]
  - Confusional state [Not Recovered/Not Resolved]
  - Dyspnoea [Not Recovered/Not Resolved]
  - Hypoaesthesia [Recovered/Resolved with Sequelae]
  - Insomnia [Not Recovered/Not Resolved]
  - Tachycardia [Not Recovered/Not Resolved]
  - Tremor [Recovered/Resolved with Sequelae]
  - Erectile dysfunction [Recovered/Resolved with Sequelae]

NARRATIVE: CASE EVENT DATE: 20241006
